FAERS Safety Report 6149448-8 (Version None)
Quarter: 2009Q2

REPORT INFORMATION
  Report Type: 
  Country: None (occurrence: None)
  Receive Date: 20090406
  Receipt Date: 20090406
  Transmission Date: 20091009
  Serious: Yes (Hospitalization)
  Sender: FDA-Public Use
  Company Number: None

PATIENT
  Sex: Female
  Weight: 70.3075 kg

DRUGS (1)
  1. NUVARING [Suspect]
     Indication: CONTRACEPTION
     Dosage: .120 MG MONTHLY VAG
     Route: 067
     Dates: start: 20070820, end: 20090122

REACTIONS (2)
  - PAIN IN EXTREMITY [None]
  - PULMONARY THROMBOSIS [None]
